FAERS Safety Report 9646415 (Version 1)
Quarter: 2013Q4

REPORT INFORMATION
  Report Type: Spontaneous
  Country: BR (occurrence: BR)
  Receive Date: 20131025
  Receipt Date: 20131025
  Transmission Date: 20140711
  Serious: Yes (Other)
  Sender: FDA-Public Use
  Company Number: PHHY2013BR118730

PATIENT
  Age: 80 Year
  Sex: Female
  Weight: 46.5 kg

DRUGS (5)
  1. RAZAPINA [Suspect]
     Indication: DEPRESSION
     Dosage: 30 MG, QD
     Route: 048
  2. RAZAPINA [Suspect]
     Indication: WEIGHT DECREASED
  3. RAZAPINA [Suspect]
     Indication: OFF LABEL USE
  4. LOSARCOR [Concomitant]
     Dosage: 50 MG, QD
  5. GLIFAGE [Concomitant]
     Dosage: 500 MG, QD

REACTIONS (3)
  - Obstructive airways disorder [Recovered/Resolved]
  - Incorrect route of drug administration [Unknown]
  - Dry mouth [Recovered/Resolved]
